FAERS Safety Report 7166924-X (Version None)
Quarter: 2010Q4

REPORT INFORMATION
  Report Type: 
  Country: None (occurrence: None)
  Receive Date: 20101213
  Receipt Date: 20101213
  Transmission Date: 20110411
  Serious: No
  Sender: FDA-Public Use
  Company Number: None

PATIENT
  Sex: Female
  Weight: 59.1 kg

DRUGS (2)
  1. CARBOPLATIN [Suspect]
     Dosage: 1237.5MG
     Dates: end: 20100810
  2. TOPOTECAN [Suspect]
     Dosage: 13.2 MG
     Dates: end: 20100810

REACTIONS (3)
  - CONDITION AGGRAVATED [None]
  - HYPONATRAEMIA [None]
  - MUCOSAL INFLAMMATION [None]
